FAERS Safety Report 17811468 (Version 1)
Quarter: 2020Q2

REPORT INFORMATION
  Report Type: Spontaneous
  Country: US (occurrence: US)
  Receive Date: 20200521
  Receipt Date: 20200521
  Transmission Date: 20200714
  Serious: No
  Sender: FDA-Public Use
  Company Number: US-PFIZER INC-2020200334

PATIENT
  Age: 56 Year
  Sex: Female
  Weight: 84.37 kg

DRUGS (1)
  1. VARENICLINE TARTRATE [Suspect]
     Active Substance: VARENICLINE TARTRATE
     Indication: SMOKING CESSATION THERAPY
     Dosage: 1 MG, 1X/DAY (VARENICLINE 1 MG ONCE DAILY FOR 90 DAYS )

REACTIONS (1)
  - Drug ineffective [Unknown]
